FAERS Safety Report 10183622 (Version 1)
Quarter: 2014Q2

REPORT INFORMATION
  Report Type: Spontaneous
  Country: US (occurrence: US)
  Receive Date: 20140520
  Receipt Date: 20140520
  Transmission Date: 20141212
  Serious: Yes (Hospitalization)
  Sender: FDA-Public Use
  Company Number: US-BANPHARM-20142694

PATIENT
  Age: 18 Year
  Sex: Female
  Weight: 58.96 kg

DRUGS (1)
  1. NAPROXEN SODIUM 220 MG [Suspect]
     Indication: INTENTIONAL OVERDOSE
     Dosage: 10 DF, ONCE,
     Route: 048
     Dates: start: 20140506, end: 20140506

REACTIONS (1)
  - Intentional overdose [Unknown]
